FAERS Safety Report 8127136-6 (Version None)
Quarter: 2012Q1

REPORT INFORMATION
  Report Type: 
  Country: None (occurrence: None)
  Receive Date: 20120210
  Receipt Date: 20120131
  Transmission Date: 20120608
  Serious: Yes (Death, Hospitalization)
  Sender: FDA-Public Use
  Company Number: US-ELI_LILLY_AND_COMPANY-US201104008040

PATIENT
  Sex: Male

DRUGS (5)
  1. FORTEO [Suspect]
     Indication: OSTEOPOROSIS
     Dosage: 20 UG, QD
     Route: 058
     Dates: start: 20110329
  2. MECLIZINE [Concomitant]
  3. LIPITOR [Concomitant]
  4. TENORMIN [Concomitant]
  5. MILK OF MAGNESIA TAB [Concomitant]

REACTIONS (2)
  - BLOOD COUNT ABNORMAL [None]
  - GASTROINTESTINAL HAEMORRHAGE [None]
